FAERS Safety Report 16715670 (Version 1)
Quarter: 2019Q3

REPORT INFORMATION
  Report Type: Spontaneous
  Country: DE (occurrence: DE)
  Receive Date: 20190819
  Receipt Date: 20190819
  Transmission Date: 20191005
  Serious: Yes (Life-Threatening, Other)
  Sender: FDA-Public Use
  Company Number: DE-TEVA-2019-DE-1088388

PATIENT
  Age: 50 Year
  Sex: Female
  Weight: 67 kg

DRUGS (1)
  1. ESTRADIOL. [Suspect]
     Active Substance: ESTRADIOL
     Indication: MENOPAUSAL SYMPTOMS
     Dosage: DAILY ADMINISTRATION OF UNKNOWN DOSE (1D)
     Route: 062
     Dates: start: 2016, end: 201807

REACTIONS (7)
  - Breast enlargement [Not Recovered/Not Resolved]
  - HER-2 positive breast cancer [Not Recovered/Not Resolved]
  - Osteolysis [Not Recovered/Not Resolved]
  - Lymphadenopathy [Not Recovered/Not Resolved]
  - Metastases to liver [Not Recovered/Not Resolved]
  - Thoracic vertebral fracture [Recovered/Resolved with Sequelae]
  - Metastases to spine [Not Recovered/Not Resolved]

NARRATIVE: CASE EVENT DATE: 201805
